FAERS Safety Report 24358413 (Version 3)
Quarter: 2024Q4

REPORT INFORMATION
  Report Type: Spontaneous
  Country: CN (occurrence: CN)
  Receive Date: 20240924
  Receipt Date: 20241209
  Transmission Date: 20250115
  Serious: Yes (Hospitalization, Other)
  Sender: PFIZER
  Company Number: CN-PFIZER INC-PV202400123318

PATIENT
  Age: 9 Year
  Sex: Male

DRUGS (2)
  1. BENEFIX [Suspect]
     Active Substance: COAGULATION FACTOR IX RECOMBINANT HUMAN\ISOPROPYL ALCOHOL
     Dosage: 250 IU, DAILY
     Route: 042
     Dates: start: 20240729
  2. BENEFIX [Suspect]
     Active Substance: COAGULATION FACTOR IX RECOMBINANT HUMAN\ISOPROPYL ALCOHOL
     Dosage: 1000 IU, DAILY
     Route: 042
     Dates: start: 20240729

REACTIONS (4)
  - Abdominal pain [Recovering/Resolving]
  - Haematuria [Unknown]
  - Petechiae [Unknown]
  - Ecchymosis [Unknown]
